FAERS Safety Report 7229625-5 (Version None)
Quarter: 2011Q1

REPORT INFORMATION
  Report Type: 
  Country: None (occurrence: None)
  Receive Date: 20110117
  Receipt Date: 20110113
  Transmission Date: 20110831
  Serious: No
  Sender: FDA-Public Use
  Company Number: US-JNJFOC-20110103843

PATIENT
  Sex: Female
  Weight: 77.11 kg

DRUGS (6)
  1. FENTANYL-100 [Suspect]
     Route: 062
  2. CHEWABLE CALCIUM [Concomitant]
     Indication: MINERAL SUPPLEMENTATION
     Route: 048
  3. KLONOPIN [Concomitant]
     Indication: NERVOUS SYSTEM DISORDER
     Route: 048
  4. EFFEXOR [Concomitant]
     Indication: ANTIDEPRESSANT THERAPY
     Route: 065
  5. PREVACID [Concomitant]
     Indication: GASTROOESOPHAGEAL REFLUX DISEASE
     Route: 048
  6. FENTANYL-100 [Suspect]
     Indication: ARTHRALGIA
     Route: 062

REACTIONS (2)
  - PRODUCT ADHESION ISSUE [None]
  - DRUG DOSE OMISSION [None]
